FAERS Safety Report 17837279 (Version 4)
Quarter: 2024Q4

REPORT INFORMATION
  Report Type: Report from Study
  Country: JP (occurrence: JP)
  Receive Date: 20200529
  Receipt Date: 20241013
  Transmission Date: 20250115
  Serious: Yes (Death, Other)
  Sender: AMGEN
  Company Number: JP-KYOWAKIRIN-2020AKK001533

PATIENT
  Age: 89 Year
  Sex: Male

DRUGS (15)
  1. DARBEPOETIN ALFA [Suspect]
     Active Substance: DARBEPOETIN ALFA
     Indication: Myelodysplastic syndrome
     Dosage: 120 MICROGRAM, Q3WK
     Route: 058
     Dates: start: 20170428, end: 20170519
  2. DARBEPOETIN ALFA [Suspect]
     Active Substance: DARBEPOETIN ALFA
     Dosage: 120 MICROGRAM, Q2WK
     Route: 058
     Dates: start: 20170602, end: 20170630
  3. DARBEPOETIN ALFA [Suspect]
     Active Substance: DARBEPOETIN ALFA
     Dosage: 240 MICROGRAM, Q3WK
     Route: 058
     Dates: start: 20170714, end: 20170915
  4. DARBEPOETIN ALFA [Suspect]
     Active Substance: DARBEPOETIN ALFA
     Dosage: 240 MICROGRAM, Q2WK
     Route: 058
     Dates: start: 20170929, end: 20171208
  5. DARBEPOETIN ALFA [Suspect]
     Active Substance: DARBEPOETIN ALFA
     Dosage: 240 MICROGRAM
     Route: 058
     Dates: start: 20171215, end: 20171215
  6. MORPHINE [Suspect]
     Active Substance: MORPHINE
     Indication: General physical health deterioration
     Dosage: 20 MILLIGRAM
     Route: 065
     Dates: start: 20180105, end: 20180116
  7. METHENOLONE [Concomitant]
     Active Substance: METHENOLONE
     Indication: Myelodysplastic syndrome
     Dosage: 20 MG
     Route: 048
     Dates: end: 20170928
  8. MENATETRENONE [Concomitant]
     Active Substance: MENATETRENONE
     Indication: Myelodysplastic syndrome
     Dosage: 45 MG
     Route: 048
     Dates: start: 20170929, end: 201712
  9. HYDREA [Concomitant]
     Active Substance: HYDROXYUREA
     Indication: Myelodysplastic syndrome
     Dosage: 500 MILLIGRAM
     Route: 048
     Dates: start: 20171208, end: 20180105
  10. DEXTROMETHORPHAN HYDROBROMIDE [Concomitant]
     Active Substance: DEXTROMETHORPHAN HYDROBROMIDE
     Indication: Pneumonia
     Dosage: 45 MILLIGRAM
     Route: 048
     Dates: start: 20171231, end: 20180106
  11. NEXIUM [Concomitant]
     Active Substance: ESOMEPRAZOLE MAGNESIUM
     Indication: Gastric ulcer
     Dosage: 20 MG
     Route: 048
     Dates: start: 20171231, end: 20180106
  12. SYMPROIC [Concomitant]
     Active Substance: NALDEMEDINE
     Indication: Constipation
     Dosage: 0.2 MILLIGRAM
     Route: 048
     Dates: start: 20180105, end: 20180112
  13. CEFEPIME [Concomitant]
     Active Substance: CEFEPIME HYDROCHLORIDE
     Indication: Pneumonia
     Dosage: 4 G
     Route: 065
     Dates: start: 20171229, end: 20180102
  14. PREDONINE [Concomitant]
     Active Substance: PREDNISOLONE
     Indication: General physical health deterioration
     Dosage: 20 MG
     Route: 065
     Dates: start: 20180102, end: 20180116
  15. MEROPENEM [Concomitant]
     Active Substance: MEROPENEM
     Indication: Pneumonia
     Dosage: 2 GRAM
     Route: 065
     Dates: start: 20180103, end: 20180109

REACTIONS (6)
  - Acute myeloid leukaemia [Fatal]
  - General physical health deterioration [Fatal]
  - Pneumonia [Fatal]
  - Transformation to acute myeloid leukaemia [Fatal]
  - Gastric ulcer [Not Recovered/Not Resolved]
  - Constipation [Not Recovered/Not Resolved]

NARRATIVE: CASE EVENT DATE: 20170804
